FAERS Safety Report 4527834-7 (Version None)
Quarter: 2004Q4

REPORT INFORMATION
  Report Type: 
  Country: None (occurrence: None)
  Receive Date: 20041215
  Receipt Date: 20041208
  Transmission Date: 20050328
  Serious: Yes (Death, Hospitalization)
  Sender: FDA-Public Use
  Company Number: FR-BRISTOL-MYERS SQUIBB COMPANY-12794749

PATIENT
  Age: 28 Year
  Sex: Female

DRUGS (4)
  1. LYSODREN [Suspect]
     Indication: ADRENOCORTICAL CARCINOMA
     Route: 048
     Dates: start: 20030220, end: 20030429
  2. METYRAPONE [Concomitant]
     Indication: ADRENOCORTICAL CARCINOMA
     Dates: start: 20030220, end: 20030429
  3. FLUDROCORTISONE ACETATE TAB [Concomitant]
  4. HYDROCORTISONE [Concomitant]

REACTIONS (7)
  - ADRENOCORTICAL CARCINOMA [None]
  - ANOREXIA [None]
  - LEUKOPENIA [None]
  - PAIN [None]
  - PARAESTHESIA [None]
  - VOMITING [None]
  - WEIGHT DECREASED [None]
